FAERS Safety Report 4367509-0 (Version None)
Quarter: 2004Q2

REPORT INFORMATION
  Report Type: 
  Country: None (occurrence: None)
  Receive Date: 20040524
  Receipt Date: 20040422
  Transmission Date: 20050107
  Serious: Yes (Death, Other)
  Sender: FDA-Public Use
  Company Number: 200410358BCA

PATIENT
  Sex: Male

DRUGS (1)
  1. IMMUNE GLOBULIN INTRAVENOUS (HUMAN) MANUFACTURER UNKNOWN [Suspect]
     Indication: PEMPHIGUS
     Dosage: INTRAVENOUS
     Route: 042
     Dates: start: 20030901

REACTIONS (3)
  - CEREBROVASCULAR ACCIDENT [None]
  - COMPLETED SUICIDE [None]
  - MYOCARDIAL INFARCTION [None]
